FAERS Safety Report 8241306-8 (Version None)
Quarter: 2012Q1

REPORT INFORMATION
  Report Type: 
  Country: None (occurrence: None)
  Receive Date: 20120328
  Receipt Date: 20120322
  Transmission Date: 20120608
  Serious: Yes (Death)
  Sender: FDA-Public Use
  Company Number: JP-CELGENEUS-087-50794-12033036

PATIENT
  Sex: Female
  Weight: 49 kg

DRUGS (9)
  1. LEVOFLOXACIN [Concomitant]
     Route: 065
     Dates: start: 20120115, end: 20120119
  2. VIDAZA [Suspect]
     Dosage: 75 MILLIGRAM/SQ. METER
     Route: 058
     Dates: start: 20111216, end: 20111222
  3. ALENDRONATE SODIUM [Concomitant]
     Dosage: 35 MILLIGRAM
     Route: 065
     Dates: start: 20111216
  4. LANSOPRAZOLE [Concomitant]
     Route: 065
     Dates: start: 20111216
  5. LEVOFLOXACIN [Concomitant]
     Route: 065
     Dates: start: 20111228, end: 20111231
  6. VIDAZA [Suspect]
     Dosage: 75 MILLIGRAM/SQ. METER
     Route: 058
     Dates: start: 20120116, end: 20120122
  7. VALSARTAN [Concomitant]
     Route: 065
     Dates: start: 20111216
  8. AUGMENTIN [Concomitant]
     Route: 065
     Dates: start: 20111228, end: 20111231
  9. MAGMITT [Concomitant]
     Route: 065
     Dates: start: 20111218, end: 20111231

REACTIONS (1)
  - SEPSIS [None]
